FAERS Safety Report 7957189-7 (Version None)
Quarter: 2011Q4

REPORT INFORMATION
  Report Type: 
  Country: None (occurrence: None)
  Receive Date: 20111205
  Receipt Date: 20111130
  Transmission Date: 20120403
  Serious: Yes (Death, Other)
  Sender: FDA-Public Use
  Company Number: GB-ROCHE-1007618

PATIENT
  Sex: Female

DRUGS (15)
  1. LUCENTIS [Suspect]
     Indication: PRODUCT USED FOR UNKNOWN INDICATION
     Route: 050
  2. VERAPAMIL HYDROCHLORIDE [Concomitant]
     Dates: start: 20101123
  3. RISEDRONATE SODIUM [Concomitant]
     Dates: start: 20080205
  4. TEMAZEPAM [Concomitant]
     Dates: start: 20060503
  5. MIRTAZAPINE [Concomitant]
     Dates: start: 20101123
  6. ACETAMINOPHEN [Concomitant]
  7. FERROUS FUMARATE [Concomitant]
     Dates: start: 20110517
  8. OXYCONTIN [Concomitant]
     Dates: start: 20110301
  9. ADCAL-D3 [Concomitant]
     Dates: start: 20101021
  10. ESOMEPRAZOLE [Concomitant]
     Dates: start: 20060503
  11. SIMVASTATIN [Concomitant]
     Dates: start: 20101206
  12. LACTULOSE [Concomitant]
     Dates: start: 20070705
  13. POLYETHYLENE GLYCOL [Concomitant]
     Dates: start: 20100201
  14. VALSARTAN [Concomitant]
     Dates: start: 20060503
  15. QVAR 40 [Concomitant]
     Dates: start: 20090910

REACTIONS (8)
  - HYPERTENSION [None]
  - GENERAL PHYSICAL HEALTH DETERIORATION [None]
  - MALAISE [None]
  - UNRESPONSIVE TO STIMULI [None]
  - MYOCARDIAL INFARCTION [None]
  - CEREBROVASCULAR DISORDER [None]
  - INFECTION [None]
  - NAUSEA [None]
